FAERS Safety Report 9535987 (Version 1)
Quarter: 2013Q2

REPORT INFORMATION
  Report Type: Spontaneous
  Country: None (occurrence: None)
  Receive Date: 20130507
  Receipt Date: 20130507
  Transmission Date: 20140414
  Serious: No
  Sender: FDA-Public Use
  Company Number: PHEH2012US024881

PATIENT
  Age: 18 Year
  Sex: Male

DRUGS (9)
  1. AFINITOR (RAD) [Suspect]
     Indication: TUBEROUS SCLEROSIS
     Route: 048
     Dates: start: 20120501
  2. TEGRETOL (CARBAMAZEPINE) [Concomitant]
  3. CLONIDINE (CLONIDINE) [Concomitant]
  4. CLONAZEPAM (CLONAZEPAM) [Concomitant]
  5. ATIVAN (LORAZEPAM) [Concomitant]
  6. MIRALAX [Concomitant]
  7. ZONEGRAN (ZONISAMIDE) [Concomitant]
  8. NEXIUM (AMOXICILLIN TRIHYDRATE, CLARITHROMYCIN, ESOMEPRAZOLE MAGNESIUM) [Concomitant]
  9. CARAFATE (SUCRALFATE) [Concomitant]

REACTIONS (1)
  - Wound [None]
